FAERS Safety Report 25958280 (Version 1)
Quarter: 2025Q4

REPORT INFORMATION
  Report Type: Spontaneous
  Country: GB (occurrence: GB)
  Receive Date: 20251024
  Receipt Date: 20251024
  Transmission Date: 20260117
  Serious: Yes (Life-Threatening, Other)
  Sender: The J.Molner Company
  Company Number: GB-THE J. MOLNER COMPANY-202510000064

PATIENT
  Age: 1 Day
  Sex: Female

DRUGS (10)
  1. HYDROCORTISONE BUTYRATE [Suspect]
     Active Substance: HYDROCORTISONE BUTYRATE
     Indication: Bronchopulmonary dysplasia
     Dosage: 0.5 MILLIGRAM/KILOGRAM, BID
     Route: 065
  2. HYDROCORTISONE BUTYRATE [Suspect]
     Active Substance: HYDROCORTISONE BUTYRATE
     Dosage: 0.5 MILLIGRAM/KILOGRAM, QD
     Route: 065
  3. DOPAMINE [Concomitant]
     Active Substance: DOPAMINE HYDROCHLORIDE
     Indication: Hypotension
     Dosage: MAXIMUM DOSE 15 MCG/KG/MIN
  4. CAFFEINE CITRATE [Concomitant]
     Active Substance: CAFFEINE CITRATE
     Dosage: 20 MILLIGRAM/KILOGRAM
  5. CAFFEINE CITRATE [Concomitant]
     Active Substance: CAFFEINE CITRATE
     Dosage: MAINTENANCE DOSE OF 5-10 MG/KG
  6. AMIKACIN [Concomitant]
     Active Substance: AMIKACIN
  7. PENICILLIN G [Concomitant]
     Active Substance: PENICILLIN G
  8. PIPERACILLIN SODIUM\TAZOBACTAM SODIUM [Concomitant]
     Active Substance: PIPERACILLIN SODIUM\TAZOBACTAM SODIUM
  9. TEICOPLANIN [Concomitant]
     Active Substance: TEICOPLANIN
  10. FLUCLOXACILLIN [Concomitant]
     Active Substance: FLUCLOXACILLIN

REACTIONS (1)
  - Hypertrophic cardiomyopathy [Recovered/Resolved]
